FAERS Safety Report 7424256-6 (Version None)
Quarter: 2011Q2

REPORT INFORMATION
  Report Type: 
  Country: None (occurrence: None)
  Receive Date: 20110419
  Receipt Date: 20110408
  Transmission Date: 20111010
  Serious: Yes (Other)
  Sender: FDA-Public Use
  Company Number: NL-BRISTOL-MYERS SQUIBB COMPANY-15654791

PATIENT
  Age: 51 Year
  Sex: Male

DRUGS (9)
  1. ZIDOVUDINE [Interacting]
     Indication: HIV INFECTION
  2. TENOFOVIR DISOPROXIL FUMARATE [Interacting]
     Indication: HIV INFECTION
  3. DIDANOSINE [Interacting]
     Indication: HIV INFECTION
     Dates: start: 20061101
  4. ATAZANAVIR [Interacting]
     Dates: start: 20080701, end: 20080901
  5. RITONAVIR [Interacting]
  6. EFAVIRENZ [Suspect]
     Indication: HIV INFECTION
  7. LAMIVUDINE [Interacting]
     Indication: HIV INFECTION
     Dosage: 3TC
     Dates: start: 20061101
  8. EMTRICITABINE [Interacting]
     Indication: HIV INFECTION
  9. ACENOCOUMAROL [Interacting]
     Indication: PULMONARY EMBOLISM
     Dosage: INCREASED FRM 4.2MG/DAY(FEB2007) TO 6.7MG/DAY(JUN2008)THEN TO 8.3MG/DAY THEN REDUCED TO 6.4MG
     Route: 048

REACTIONS (3)
  - DRUG INTERACTION [None]
  - PULMONARY EMBOLISM [None]
  - EMBOLISM VENOUS [None]
